FAERS Safety Report 17641431 (Version 1)
Quarter: 2020Q2

REPORT INFORMATION
  Report Type: Spontaneous
  Country: US (occurrence: US)
  Receive Date: 20200407
  Receipt Date: 20200407
  Transmission Date: 20200713
  Serious: Yes (Death, Life-Threatening, Hospitalization, Disabling, Other)
  Sender: FDA-Public Use
  Company Number: US-009507513-2004USA000699

PATIENT
  Sex: Male

DRUGS (10)
  1. PLAQUENIL [Concomitant]
     Active Substance: HYDROXYCHLOROQUINE SULFATE
  2. ASPIRIN. [Concomitant]
     Active Substance: ASPIRIN
  3. DURAGESIC [Concomitant]
     Active Substance: FENTANYL
  4. COZAAR [Suspect]
     Active Substance: LOSARTAN POTASSIUM
     Indication: HYPERTENSION
     Route: 048
  5. COZAAR [Suspect]
     Active Substance: LOSARTAN POTASSIUM
     Indication: CORONARY ARTERY DISEASE
  6. VYTORIN [Suspect]
     Active Substance: EZETIMIBE\SIMVASTATIN
     Indication: HYPERLIPIDAEMIA
     Route: 048
  7. ZYTIGA [Concomitant]
     Active Substance: ABIRATERONE ACETATE
  8. PRINIVIL [Suspect]
     Active Substance: LISINOPRIL
     Indication: CORONARY ARTERY DISEASE
  9. PRINIVIL [Suspect]
     Active Substance: LISINOPRIL
     Indication: HYPERTENSION
     Route: 048
  10. PROTONIX [Concomitant]
     Active Substance: PANTOPRAZOLE SODIUM

REACTIONS (8)
  - Respiratory failure [Fatal]
  - Cardiac failure [Unknown]
  - Product use in unapproved indication [Unknown]
  - Prostate cancer metastatic [Unknown]
  - Multiple organ dysfunction syndrome [Unknown]
  - General physical health deterioration [Unknown]
  - Oedema peripheral [Unknown]
  - Metastases to bone [Unknown]

NARRATIVE: CASE EVENT DATE: 2018
